FAERS Safety Report 22289854 (Version 1)
Quarter: 2023Q2

REPORT INFORMATION
  Report Type: Spontaneous
  Country: DE (occurrence: None)
  Receive Date: 20230505
  Receipt Date: 20230505
  Transmission Date: 20230722
  Serious: Yes (Other)
  Sender: FDA-Public Use
  Company Number: 2023A102463

PATIENT
  Age: 60 Year
  Sex: Female
  Weight: 58 kg

DRUGS (5)
  1. DAPAGLIFLOZIN [Suspect]
     Active Substance: DAPAGLIFLOZIN
     Route: 048
  2. BISOPROLOL [Concomitant]
     Active Substance: BISOPROLOL
  3. SACUBITRIL\VALSARTAN [Concomitant]
     Active Substance: SACUBITRIL\VALSARTAN
  4. SPIRONOLACTONE [Concomitant]
     Active Substance: SPIRONOLACTONE
  5. TORSEMIDE [Concomitant]
     Active Substance: TORSEMIDE

REACTIONS (10)
  - Troponin increased [Unknown]
  - N-terminal prohormone brain natriuretic peptide increased [Unknown]
  - Ejection fraction decreased [Unknown]
  - Glomerular filtration rate decreased [Unknown]
  - Epigastric discomfort [Unknown]
  - Hypotension [Unknown]
  - Heart rate decreased [Unknown]
  - Cough [Unknown]
  - Dyspnoea exertional [Unknown]
  - Pneumonia [Unknown]
